FAERS Safety Report 8329800-2 (Version None)
Quarter: 2012Q2

REPORT INFORMATION
  Report Type: 
  Country: None (occurrence: None)
  Receive Date: 20120502
  Receipt Date: 20120423
  Transmission Date: 20120825
  Serious: Yes (Other)
  Sender: FDA-Public Use
  Company Number: US-BAYER-2012-039948

PATIENT
  Age: 68 Year
  Sex: Male
  Weight: 129 kg

DRUGS (1)
  1. MILK OF MAGNESIA TAB [Suspect]
     Indication: CONSTIPATION
     Dosage: 3 DF (TBSP) ONCE
     Route: 048
     Dates: start: 20120422

REACTIONS (4)
  - DYSPNOEA [None]
  - ABDOMINAL DISTENSION [None]
  - CONSTIPATION [None]
  - ABDOMINAL DISCOMFORT [None]
